FAERS Safety Report 6998240-0 (Version None)
Quarter: 2010Q3

REPORT INFORMATION
  Report Type: 
  Country: None (occurrence: None)
  Receive Date: 20100920
  Receipt Date: 20100412
  Transmission Date: 20110219
  Serious: Yes (Other)
  Sender: FDA-Public Use
  Company Number: US-ASTRAZENECA-2009SE13089

PATIENT
  Age: 21751 Day
  Sex: Male

DRUGS (7)
  1. SEROQUEL [Suspect]
     Indication: AFFECTIVE DISORDER
     Route: 048
     Dates: start: 20050324
  2. SEROQUEL [Suspect]
     Indication: SLEEP DISORDER
     Route: 048
     Dates: start: 20050324
  3. SEROQUEL [Suspect]
     Indication: PARANOIA
     Route: 048
     Dates: start: 20050324
  4. LEXAPRO [Concomitant]
  5. DIVALPROEX SODIUM [Concomitant]
     Dosage: 250 MG TAB TAKE ONE TABLET BY MOUTH EVERY EVENING FOR 7 DAYS, THEN TAKE TWO TABLETS EVERY EVENING
  6. MIRTAZAPINE [Concomitant]
     Indication: DEPRESSION
     Dosage: 30MG TAB TAKE ONE-HALF TABLET BY MOUTH AT BEDTIME
  7. SERTRALINE HYDROCHLORIDE [Concomitant]
     Indication: DEPRESSION
     Dosage: 100MG TAB TAKE ONE TABLET BY MOUTH EVERY MORNING

REACTIONS (2)
  - DIABETES MELLITUS [None]
  - ERECTILE DYSFUNCTION [None]
